FAERS Safety Report 21404168 (Version 3)
Quarter: 2024Q2

REPORT INFORMATION
  Report Type: Report from Study
  Country: US (occurrence: US)
  Receive Date: 20221003
  Receipt Date: 20240604
  Transmission Date: 20240716
  Serious: Yes (Other)
  Sender: FDA-Public Use
  Company Number: US-PFIZER INC-PV202200072733

PATIENT
  Age: 71 Year
  Sex: Male

DRUGS (9)
  1. PAXLOVID [Interacting]
     Active Substance: NIRMATRELVIR\RITONAVIR
     Indication: COVID-19 treatment
     Dosage: UNK
     Route: 048
     Dates: start: 20220808, end: 20220812
  2. ENZALUTAMIDE [Interacting]
     Active Substance: ENZALUTAMIDE
     Indication: Prostate cancer stage IV
     Dosage: 160 MG, 1X/DAY
     Route: 048
     Dates: start: 20220428, end: 20220815
  3. ENZALUTAMIDE [Interacting]
     Active Substance: ENZALUTAMIDE
     Dosage: 160 MG
     Dates: end: 20220812
  4. ENZALUTAMIDE [Interacting]
     Active Substance: ENZALUTAMIDE
     Dosage: 160 MG, 1X/DAY
     Route: 048
     Dates: start: 20220504, end: 20220807
  5. ENZALUTAMIDE [Interacting]
     Active Substance: ENZALUTAMIDE
     Dosage: 160 MG
     Route: 048
     Dates: start: 20220813
  6. RAMIPRIL [Concomitant]
     Active Substance: RAMIPRIL
     Dosage: 10 MG
     Route: 065
  7. PREDNISONE [Concomitant]
     Active Substance: PREDNISONE
     Dosage: UNK
     Route: 065
  8. CRESTOR [Concomitant]
     Active Substance: ROSUVASTATIN CALCIUM
     Dosage: 10 MG
     Route: 065
  9. CALCIUM [Concomitant]
     Active Substance: CALCIUM
     Dosage: UNK
     Route: 065

REACTIONS (15)
  - Hand fracture [Not Recovered/Not Resolved]
  - Fall [Recovered/Resolved]
  - Diarrhoea [Unknown]
  - Rectal lesion [Unknown]
  - Proctalgia [Unknown]
  - Macule [Unknown]
  - Dermatitis diaper [Recovered/Resolved]
  - Anal rash [Recovered/Resolved]
  - Fatigue [Unknown]
  - Asthenia [Unknown]
  - Incorrect product administration duration [Unknown]
  - Drug interaction [Unknown]
  - Abdominal discomfort [Recovered/Resolved]
  - Dyspepsia [Recovered/Resolved]
  - COVID-19 [Recovered/Resolved]

NARRATIVE: CASE EVENT DATE: 20220801
